FAERS Safety Report 11927340 (Version 1)
Quarter: 2016Q1

REPORT INFORMATION
  Report Type: Spontaneous
  Country: US (occurrence: US)
  Receive Date: 20160119
  Receipt Date: 20160119
  Transmission Date: 20160526
  Serious: Yes (Other)
  Sender: FDA-Public Use
  Company Number: US-SA-2016SA007197

PATIENT
  Age: 67 Year
  Sex: Female

DRUGS (2)
  1. SOLOSTAR [Concomitant]
     Active Substance: DEVICE
     Indication: TYPE 2 DIABETES MELLITUS
     Dates: start: 2011
  2. LANTUS SOLOSTAR [Suspect]
     Active Substance: INSULIN GLARGINE
     Indication: TYPE 2 DIABETES MELLITUS
     Dosage: DOSE: 10-12 U
     Route: 065
     Dates: start: 2011

REACTIONS (5)
  - Muscular weakness [Unknown]
  - Muscle rupture [Unknown]
  - Blood glucose increased [Unknown]
  - Back injury [Unknown]
  - Rotator cuff syndrome [Unknown]
